FAERS Safety Report 10010179 (Version 1)
Quarter: 2014Q1

REPORT INFORMATION
  Report Type: Spontaneous
  Country: IT (occurrence: IT)
  Receive Date: 20140313
  Receipt Date: 20140313
  Transmission Date: 20141002
  Serious: Yes (Hospitalization)
  Sender: FDA-Public Use
  Company Number: IT-TEVA-466560ISR

PATIENT
  Age: 57 Year
  Sex: Female

DRUGS (3)
  1. RAMIPRIL [Suspect]
     Indication: HYPERTENSION
     Dosage: 2.5 MG DAILY
     Route: 048
     Dates: start: 20130701, end: 20140119
  2. ALIFLUS DISKUS - 50/100 POLVERE PER INALAZIONE [Concomitant]
     Indication: ASTHMA
  3. BARNIDIPINE HYDROCHLORIDE [Concomitant]
     Indication: HYPERTENSION
     Dosage: 10 MG
     Route: 048
     Dates: start: 19940101, end: 20140119

REACTIONS (2)
  - Bronchospasm [Recovering/Resolving]
  - Urticaria [Recovering/Resolving]
